APPROVED DRUG PRODUCT: TAFLUPROST
Active Ingredient: TAFLUPROST
Strength: 0.0015%
Dosage Form/Route: SOLUTION/DROPS;OPHTHALMIC
Application: A209051 | Product #001 | TE Code: AT
Applicant: MICRO LABS LTD
Approved: Aug 19, 2019 | RLD: No | RS: No | Type: RX